FAERS Safety Report 11178156 (Version 2)
Quarter: 2015Q3

REPORT INFORMATION
  Report Type: Report from Study
  Country: US (occurrence: US)
  Receive Date: 20150610
  Receipt Date: 20150805
  Transmission Date: 20151125
  Serious: Yes (Hospitalization, Other)
  Sender: FDA-Public Use
  Company Number: US-ABBVIE-15P-163-1402623-00

PATIENT
  Age: 51 Year
  Sex: Male
  Weight: 74.91 kg

DRUGS (2)
  1. HUMIRA [Suspect]
     Active Substance: ADALIMUMAB
     Indication: CROHN^S DISEASE
     Route: 065
     Dates: start: 2011
  2. HUMIRA [Suspect]
     Active Substance: ADALIMUMAB
     Route: 065

REACTIONS (12)
  - Injection site papule [Recovered/Resolved]
  - Device issue [Unknown]
  - Intestinal fibrosis [Recovered/Resolved]
  - Colectomy [Unknown]
  - Incorrect dose administered [Unknown]
  - Rectal prolapse [Unknown]
  - Wrong technique in product usage process [Unknown]
  - Intestinal obstruction [Recovered/Resolved]
  - Crohn^s disease [Recovering/Resolving]
  - Intestinal anastomosis [Recovered/Resolved]
  - Intestinal stenosis [Recovered/Resolved]
  - Injection site pain [Recovered/Resolved]

NARRATIVE: CASE EVENT DATE: 20150203
